FAERS Safety Report 10188535 (Version 1)
Quarter: 2014Q2

REPORT INFORMATION
  Report Type: Spontaneous
  Country: US (occurrence: US)
  Receive Date: 20140522
  Receipt Date: 20140522
  Transmission Date: 20141212
  Serious: No
  Sender: FDA-Public Use
  Company Number: US-SA-2014SA032262

PATIENT
  Age: 58 Year
  Sex: Female

DRUGS (2)
  1. LANTUS [Suspect]
     Indication: DIABETES MELLITUS
     Dosage: START DATE 2000 OR 2002 DOSE:55 UNIT(S)
     Route: 065
  2. LANTUS [Suspect]
     Indication: DIABETES MELLITUS
     Dosage: TAKES LANTUS VIAL, 44 UNITS DAILY DOSE:44 UNIT(S)
     Route: 065

REACTIONS (1)
  - Arthritis [Not Recovered/Not Resolved]
